FAERS Safety Report 4881723-7 (Version None)
Quarter: 2006Q1

REPORT INFORMATION
  Report Type: 
  Country: None (occurrence: None)
  Receive Date: 20060116
  Receipt Date: 20051216
  Transmission Date: 20060701
  Serious: Yes (Hospitalization)
  Sender: FDA-Public Use
  Company Number: JP-ROCHE-429348

PATIENT
  Age: 83 Year
  Sex: Female
  Weight: 45 kg

DRUGS (7)
  1. ROCEPHIN [Suspect]
     Indication: PYELONEPHRITIS
     Route: 042
     Dates: start: 20051127, end: 20051206
  2. LASIX [Concomitant]
     Route: 048
     Dates: start: 19950215
  3. CERCINE [Concomitant]
     Route: 048
     Dates: start: 19950215
  4. ZYLORIC [Concomitant]
     Route: 048
     Dates: start: 20011102
  5. WARFARIN SODIUM [Concomitant]
     Route: 048
     Dates: start: 20011102
  6. ARTIST [Concomitant]
     Route: 048
     Dates: start: 20011107
  7. FRANDOL [Concomitant]
     Route: 061
     Dates: start: 20051001

REACTIONS (4)
  - BLOOD URINE PRESENT [None]
  - CHOLELITHIASIS [None]
  - PANCREATITIS ACUTE [None]
  - WHITE BLOOD CELLS URINE POSITIVE [None]
